FAERS Safety Report 8816859 (Version 1)
Quarter: 2012Q4

REPORT INFORMATION
  Report Type: Spontaneous
  Country: US (occurrence: None)
  Receive Date: 20121002
  Receipt Date: 20121002
  Transmission Date: 20130627
  Serious: Yes (Other)
  Sender: FDA-Public Use
  Company Number: None

PATIENT
  Age: 32 Month
  Sex: Male
  Weight: 11.88 kg

DRUGS (3)
  1. MONTELUKAST [Suspect]
     Indication: ASTHMA
     Dosage: 4mg chew tab daily at bedtime po
     Route: 048
     Dates: start: 20120908, end: 20120915
  2. MONTELUKAST [Suspect]
     Indication: REACTIVE AIRWAY DISEASE
     Dosage: 4mg chew tab daily at bedtime po
     Route: 048
     Dates: start: 20120908, end: 20120915
  3. MONTELUKAST [Suspect]
     Indication: MULTIPLE ALLERGIES
     Dosage: 4mg chew tab daily at bedtime po
     Route: 048
     Dates: start: 20120908, end: 20120915

REACTIONS (7)
  - Product substitution issue [None]
  - Abnormal behaviour [None]
  - Aggression [None]
  - Agitation [None]
  - Anger [None]
  - Eczema [None]
  - Respiratory distress [None]
